FAERS Safety Report 21055500 (Version 1)
Quarter: 2022Q3

REPORT INFORMATION
  Report Type: Spontaneous
  Country: FR (occurrence: FR)
  Receive Date: 20220708
  Receipt Date: 20220708
  Transmission Date: 20221027
  Serious: Yes (Hospitalization)
  Sender: FDA-Public Use
  Company Number: None

PATIENT
  Age: 60 Year
  Sex: Male
  Weight: 150 kg

DRUGS (12)
  1. KETOPROFEN [Suspect]
     Active Substance: KETOPROFEN
     Indication: Periarthritis
     Dosage: DOSAGE NOT SPECIFIED , UNIT DOSE : 2 DF , FREQUENCY TIME : 1 DAYS , DURATION : 3 DAYS
     Route: 048
     Dates: start: 20220314, end: 20220317
  2. FUROSEMIDE [Concomitant]
     Active Substance: FUROSEMIDE
     Indication: Hypertension
     Dosage: SCORED TABLET , FORM STRENGTH : 40 MG , UNIT DOSE : 1 DF , FREQUENCY TIME : 1 DAYS
     Route: 048
  3. JANUMET [Concomitant]
     Active Substance: METFORMIN HYDROCHLORIDE\SITAGLIPTIN PHOSPHATE
     Indication: Diabetes mellitus
     Dosage: 50 MG/1000 MG , UNIT DOSE : 2 DF , FREQUENCY TIME : 1 DAYS
     Route: 048
  4. RAMIPRIL [Concomitant]
     Active Substance: RAMIPRIL
     Indication: Hypertension
     Dosage: UNIT DOSE : 20 MG , FREQUENCY TIME : 1 DAYS
     Route: 048
  5. BISOPROLOL FUMARATE [Concomitant]
     Active Substance: BISOPROLOL FUMARATE
     Indication: Hypertension
     Dosage: BISOPROLOL (FUMARATE ACIDE DE) , UNIT DOSE : 5 MG , FREQUENCY TIME : 1 DAYS
     Route: 048
  6. EPLERENONE [Concomitant]
     Active Substance: EPLERENONE
     Indication: Myocardial ischaemia
     Dosage: UNIT DOSE : 25 MG , FREQUENCY TIME : 1 DAYS
     Route: 048
  7. GLICLAZIDE [Concomitant]
     Active Substance: GLICLAZIDE
     Indication: Diabetes mellitus
     Dosage: UNIT DOSE : 60 MG , FREQUENCY TIME : 1 DAYS
     Route: 048
  8. ATORVASTATIN [Concomitant]
     Active Substance: ATORVASTATIN
     Indication: Cardiovascular event prophylaxis
     Dosage: UNIT DOSE : 20 MG , FREQUENCY TIME : 1 DAYS
     Route: 048
  9. SILODOSIN [Concomitant]
     Active Substance: SILODOSIN
     Indication: Benign prostatic hyperplasia
     Dosage: FORM STRENGTH : 4 MG , UNIT DOSE : 1 DF , FREQUENCY TIME : 1 DAYS
     Route: 048
  10. KARDEGIC [Concomitant]
     Active Substance: ASPIRIN DL-LYSINE
     Indication: Cardiovascular event prophylaxis
     Dosage: FORM STRENGTH : 75 MG, POWDER FOR ORAL SOLUTION IN SACHET-DOSE , UNIT DOSE : 1 DF , FREQUENCY TIME :
     Route: 048
  11. IVABRADINE [Concomitant]
     Active Substance: IVABRADINE
     Indication: Myocardial ischaemia
     Dosage: UNIT DOSE : 10 MG , FREQUENCY TIME : 1 DAYS
     Route: 048
  12. METFORMIN HYDROCHLORIDE [Concomitant]
     Active Substance: METFORMIN HYDROCHLORIDE
     Indication: Diabetes mellitus
     Dosage: UNIT DOSE : 1000 MG , FREQUENCY TIME : 1 DAYS
     Route: 048

REACTIONS (3)
  - Abscess soft tissue [Recovering/Resolving]
  - Septic shock [Recovering/Resolving]
  - Arthritis bacterial [Recovering/Resolving]

NARRATIVE: CASE EVENT DATE: 20220317
